FAERS Safety Report 9937044 (Version 1)
Quarter: 2014Q1

REPORT INFORMATION
  Report Type: Spontaneous
  Country: US (occurrence: None)
  Receive Date: 20140122
  Receipt Date: 20140122
  Transmission Date: 20141002
  Serious: No
  Sender: FDA-Public Use
  Company Number: AP356-00255-SPO-US

PATIENT
  Age: 77 Year
  Sex: Female
  Weight: 99.7 kg

DRUGS (3)
  1. BELVIQ [Suspect]
     Indication: WEIGHT CONTROL
     Route: 048
     Dates: start: 20131016, end: 20131110
  2. ARMOUR THYROIAD (THYROID) [Concomitant]
  3. METFORMIN (METFORMIN) [Concomitant]

REACTIONS (5)
  - Feeling abnormal [None]
  - Nausea [None]
  - Fatigue [None]
  - Dizziness [None]
  - Headache [None]
